FAERS Safety Report 23160528 (Version 6)
Quarter: 2023Q4

REPORT INFORMATION
  Report Type: Spontaneous
  Country: CO (occurrence: CO)
  Receive Date: 20231108
  Receipt Date: 20231227
  Transmission Date: 20240109
  Serious: No
  Sender: FDA-Public Use
  Company Number: CO-PFIZER INC-PV202300173522

PATIENT
  Age: 13 Year
  Sex: Male
  Weight: 52 kg

DRUGS (2)
  1. GENOTROPIN [Suspect]
     Active Substance: SOMATROPIN
     Indication: Hormone therapy
     Dosage: 1.8 MG, DAILY
     Route: 058
     Dates: start: 2016
  2. GENOTROPIN [Suspect]
     Active Substance: SOMATROPIN
     Dosage: 2 (UNIT UNKNOWN)

REACTIONS (5)
  - Expired device used [Unknown]
  - Device use issue [Unknown]
  - Device use error [Unknown]
  - Device physical property issue [Unknown]
  - Poor quality device used [Unknown]

NARRATIVE: CASE EVENT DATE: 20230901
